FAERS Safety Report 4282092-6 (Version None)
Quarter: 2004Q1

REPORT INFORMATION
  Report Type: 
  Country: None (occurrence: None)
  Receive Date: 20040130
  Receipt Date: 20030415
  Transmission Date: 20041129
  Serious: No
  Sender: FDA-Public Use
  Company Number: US-BRISTOL-MYERS SQUIBB COMPANY-12243002

PATIENT
  Age: 4 Decade
  Sex: Male

DRUGS (2)
  1. DESYREL [Suspect]
     Indication: INSOMNIA
     Dosage: RECEIVED DOSE ^LAST NIGHT^
     Route: 048
     Dates: start: 20030414
  2. INSULIN [Concomitant]

REACTIONS (1)
  - ERECTION INCREASED [None]
